FAERS Safety Report 21110853 (Version 1)
Quarter: 2022Q3

REPORT INFORMATION
  Report Type: Report from Study
  Country: US (occurrence: US)
  Receive Date: 20220721
  Receipt Date: 20220721
  Transmission Date: 20221026
  Serious: Yes (Hospitalization, Other)
  Sender: FDA-Public Use
  Company Number: US-TAKEDA-2021TUS042877

PATIENT
  Sex: Female
  Weight: 64 kg

DRUGS (76)
  1. HUMAN C1-ESTERASE INHIBITOR [Suspect]
     Active Substance: HUMAN C1-ESTERASE INHIBITOR
     Indication: Immune system disorder
     Dosage: 1000 INTERNATIONAL UNIT, Q72H
     Route: 042
     Dates: start: 20210410
  2. HUMAN C1-ESTERASE INHIBITOR [Suspect]
     Active Substance: HUMAN C1-ESTERASE INHIBITOR
     Indication: Immune system disorder
     Dosage: 1000 INTERNATIONAL UNIT, Q72H
     Route: 042
     Dates: start: 20210410
  3. HUMAN C1-ESTERASE INHIBITOR [Suspect]
     Active Substance: HUMAN C1-ESTERASE INHIBITOR
     Indication: Immune system disorder
     Dosage: 1000 INTERNATIONAL UNIT, Q72H
     Route: 042
     Dates: start: 20210410
  4. HUMAN C1-ESTERASE INHIBITOR [Suspect]
     Active Substance: HUMAN C1-ESTERASE INHIBITOR
     Indication: Immunodeficiency common variable
     Dosage: 1000 INTERNATIONAL UNIT, 2/WEEK
     Route: 042
     Dates: start: 20210410
  5. HUMAN C1-ESTERASE INHIBITOR [Suspect]
     Active Substance: HUMAN C1-ESTERASE INHIBITOR
     Indication: Immunodeficiency common variable
     Dosage: 1000 INTERNATIONAL UNIT, 2/WEEK
     Route: 042
     Dates: start: 20210410
  6. HUMAN C1-ESTERASE INHIBITOR [Suspect]
     Active Substance: HUMAN C1-ESTERASE INHIBITOR
     Indication: Immunodeficiency common variable
     Dosage: 1000 INTERNATIONAL UNIT, 2/WEEK
     Route: 042
     Dates: start: 20210410
  7. HUMAN C1-ESTERASE INHIBITOR [Suspect]
     Active Substance: HUMAN C1-ESTERASE INHIBITOR
     Indication: B-lymphocyte abnormalities
     Dosage: 1000 INTERNATIONAL UNIT, Q72H
     Route: 042
     Dates: start: 20210324
  8. HUMAN C1-ESTERASE INHIBITOR [Suspect]
     Active Substance: HUMAN C1-ESTERASE INHIBITOR
     Indication: B-lymphocyte abnormalities
     Dosage: 1000 INTERNATIONAL UNIT, Q72H
     Route: 042
     Dates: start: 20210324
  9. HUMAN C1-ESTERASE INHIBITOR [Suspect]
     Active Substance: HUMAN C1-ESTERASE INHIBITOR
     Indication: B-lymphocyte abnormalities
     Dosage: 1000 INTERNATIONAL UNIT, Q72H
     Route: 042
     Dates: start: 20210324
  10. OCTAGAM IMMUNE GLOBULIN (HUMAN) [Suspect]
     Active Substance: HUMAN IMMUNOGLOBULIN G
     Indication: Product used for unknown indication
     Dosage: UNK
     Route: 065
  11. RUCONEST [Suspect]
     Active Substance: HUMAN C1-ESTERASE INHIBITOR
     Indication: Immune system disorder
     Dosage: 4200 INTERNATIONAL UNIT, AS NEEDED
     Route: 042
     Dates: start: 20210324
  12. RUCONEST [Suspect]
     Active Substance: HUMAN C1-ESTERASE INHIBITOR
     Indication: Immunodeficiency common variable
  13. RUCONEST [Suspect]
     Active Substance: HUMAN C1-ESTERASE INHIBITOR
     Indication: B-lymphocyte abnormalities
  14. ACETAMINOPHEN [Concomitant]
     Active Substance: ACETAMINOPHEN
  15. DIPHENHYDRAMINE [Concomitant]
     Active Substance: DIPHENHYDRAMINE
  16. HEPARIN [Concomitant]
     Active Substance: HEPARIN SODIUM
  17. SODIUM CHLORIDE [Concomitant]
     Active Substance: SODIUM CHLORIDE
  18. ONDANSETRON [Concomitant]
     Active Substance: ONDANSETRON
  19. EPINEPHRINE [Concomitant]
     Active Substance: EPINEPHRINE
  20. Lmx [Concomitant]
  21. SOLU-MEDROL [Concomitant]
     Active Substance: METHYLPREDNISOLONE SODIUM SUCCINATE
  22. BUPROPION [Concomitant]
     Active Substance: BUPROPION
  23. METHYLPREDNISOLONE [Concomitant]
     Active Substance: METHYLPREDNISOLONE
  24. PROTONIX [Concomitant]
     Active Substance: PANTOPRAZOLE SODIUM
  25. ALBUTEROL [Concomitant]
     Active Substance: ALBUTEROL
  26. TRIMETHYLGLYCINE [Concomitant]
  27. HYDROXYCHLOROQUINE [Concomitant]
     Active Substance: HYDROXYCHLOROQUINE
  28. ELURYNG [Concomitant]
     Active Substance: ETHINYL ESTRADIOL\ETONOGESTREL
  29. DOXYCYCLINE [Concomitant]
     Active Substance: DOXYCYCLINE
  30. CLOBETASOL [Concomitant]
     Active Substance: CLOBETASOL
  31. CROMOLYN [Concomitant]
     Active Substance: CROMOLYN
  32. WELLBUTRIN [Concomitant]
     Active Substance: BUPROPION HYDROCHLORIDE
  33. VALACYCLOVIR [Concomitant]
     Active Substance: VALACYCLOVIR HYDROCHLORIDE
  34. ANUCORT-HC [Concomitant]
     Active Substance: HYDROCORTISONE ACETATE
  35. MONTELUKAST [Concomitant]
     Active Substance: MONTELUKAST SODIUM
  36. DAPSONE [Concomitant]
     Active Substance: DAPSONE
  37. COENZYME Q10 [Concomitant]
     Active Substance: DIETARY SUPPLEMENT\UBIDECARENONE
  38. TRIAMCINOLONE [Concomitant]
     Active Substance: TRIAMCINOLONE
  39. KETOPROFEN [Concomitant]
     Active Substance: KETOPROFEN
  40. CLARITIN-D NOS [Concomitant]
     Active Substance: LORATADINE\PSEUDOEPHEDRINE SULFATE
  41. XYZAL [Concomitant]
     Active Substance: LEVOCETIRIZINE DIHYDROCHLORIDE
  42. ALLEGRA [Concomitant]
     Active Substance: FEXOFENADINE HYDROCHLORIDE
  43. ZYRTEC [Concomitant]
     Active Substance: CETIRIZINE HYDROCHLORIDE
  44. NALTREXONE [Concomitant]
     Active Substance: NALTREXONE
  45. DEXAMETHASONE [Concomitant]
     Active Substance: DEXAMETHASONE
  46. TRULANCE [Concomitant]
     Active Substance: PLECANATIDE
  47. CARAFATE [Concomitant]
     Active Substance: SUCRALFATE
  48. PROBIOTICS NOS [Concomitant]
     Active Substance: PROBIOTICS NOS
  49. CANNABIS SATIVA FLOWERING TOP [Concomitant]
     Active Substance: CANNABIS SATIVA FLOWERING TOP
  50. Nac [Concomitant]
  51. Detox [Concomitant]
     Dosage: UNK
     Route: 065
  52. LECITHIN [Concomitant]
     Active Substance: LECITHIN
     Route: 065
  53. S acetylglutathion [Concomitant]
     Route: 065
  54. Zymogen [Concomitant]
  55. BENADRYL [Concomitant]
     Active Substance: DIPHENHYDRAMINE HYDROCHLORIDE
  56. STERILE WATER [Concomitant]
     Active Substance: WATER
  57. TAGAMET [Concomitant]
     Active Substance: CIMETIDINE
  58. ZOFRAN [Concomitant]
     Active Substance: ONDANSETRON HYDROCHLORIDE
  59. SODIUM CHLORIDE [Concomitant]
     Active Substance: SODIUM CHLORIDE
  60. ELIXIR COLICO [Concomitant]
  61. ACETONIDE DE FLUCLOROLONE [Concomitant]
  62. TREXONE [Concomitant]
  63. LIDOCAINE [Concomitant]
     Active Substance: LIDOCAINE
  64. XOLAIR [Concomitant]
     Active Substance: OMALIZUMAB
  65. DIPHENHYDRAMINE HYDROCHLORIDE [Concomitant]
     Active Substance: DIPHENHYDRAMINE HYDROCHLORIDE
  66. METHYLPREDNISOLONE ACETATE [Concomitant]
     Active Substance: METHYLPREDNISOLONE ACETATE
  67. HYDROXYCHLOROQUINE SULFATE [Concomitant]
     Active Substance: HYDROXYCHLOROQUINE SULFATE
  68. AZITHROMYCIN [Concomitant]
     Active Substance: AZITHROMYCIN
  69. TRIAMCINOLONE ACETONIDE [Concomitant]
     Active Substance: TRIAMCINOLONE ACETONIDE
  70. NALTREXONE HYDROCHLORIDE [Concomitant]
     Active Substance: NALTREXONE HYDROCHLORIDE
  71. XARELTO [Concomitant]
     Active Substance: RIVAROXABAN
  72. BUPROPION HYDROCHLORIDE [Concomitant]
     Active Substance: BUPROPION HYDROCHLORIDE
  73. DOXYCYCLINE HYCLATE [Concomitant]
     Active Substance: DOXYCYCLINE HYCLATE
  74. ALBUTEROL SULFATE [Concomitant]
     Active Substance: ALBUTEROL SULFATE
  75. HYDROXYZINE HYDROCHLORIDE [Concomitant]
     Active Substance: HYDROXYZINE HYDROCHLORIDE
  76. PFIZER-BIONTECH COVID-19 VACCINE [Concomitant]
     Active Substance: TOZINAMERAN

REACTIONS (15)
  - Infusion site extravasation [Unknown]
  - Catheter site thrombosis [Unknown]
  - Asthma [Unknown]
  - COVID-19 [Unknown]
  - Infusion related reaction [Unknown]
  - Upper respiratory tract infection [Unknown]
  - Fatigue [Unknown]
  - Pain [Unknown]
  - Migraine [Unknown]
  - Arthralgia [Unknown]
  - Dermatitis contact [Unknown]
  - Hypotension [Unknown]
  - Hereditary angioedema [Unknown]
  - Headache [Unknown]
  - Device occlusion [Unknown]
